FAERS Safety Report 5004747-8 (Version None)
Quarter: 2006Q1

REPORT INFORMATION
  Report Type: 
  Country: None (occurrence: None)
  Receive Date: 20060321
  Receipt Date: 20051128
  Transmission Date: 20060701
  Serious: No
  Sender: FDA-Public Use
  Company Number: YPA20050607

PATIENT
  Sex: Female

DRUGS (6)
  1. VESICARE [Suspect]
     Indication: HYPERTONIC BLADDER
     Dosage: 5 MG, UID/QD/ORAL
     Route: 048
     Dates: start: 20051117, end: 20051120
  2. ASPIRIN [Concomitant]
  3. HYDROXYUREA [Concomitant]
  4. ACTONEL [Concomitant]
  5. GLUCOSAMINE (GLUCOSAMINE) [Concomitant]
  6. CALCIUM (CALCIUM) [Concomitant]

REACTIONS (6)
  - COUGH [None]
  - DRY MOUTH [None]
  - DRY THROAT [None]
  - ORAL PAIN [None]
  - THROAT IRRITATION [None]
  - THROAT TIGHTNESS [None]
